FAERS Safety Report 20568710 (Version 1)
Quarter: 2022Q1

REPORT INFORMATION
  Report Type: Spontaneous
  Country: US (occurrence: US)
  Receive Date: 20220308
  Receipt Date: 20220308
  Transmission Date: 20220423
  Serious: No
  Sender: FDA-Public Use
  Company Number: US-PFIZER INC-2021707960

PATIENT
  Age: 64 Year
  Sex: Female
  Weight: 95.25 kg

DRUGS (3)
  1. VISTARIL [Suspect]
     Active Substance: HYDROXYZINE PAMOATE
     Indication: Drug hypersensitivity
     Dosage: 25 MG, 3X/DAY AS NEEDED
     Route: 048
     Dates: start: 202104
  2. VISTARIL [Suspect]
     Active Substance: HYDROXYZINE PAMOATE
     Indication: Pruritus
     Dosage: 25 MG (TAKING IT BETWEEN 6 AND 8 TIMES A DAY)
     Route: 048
     Dates: start: 202104
  3. PEPCID [Concomitant]
     Active Substance: FAMOTIDINE
     Indication: Drug hypersensitivity
     Dosage: UNK
     Dates: start: 202104

REACTIONS (5)
  - Drug ineffective [Not Recovered/Not Resolved]
  - Somnolence [Unknown]
  - Vulvovaginal pruritus [Unknown]
  - Dyspnoea [Unknown]
  - Intentional product use issue [Unknown]

NARRATIVE: CASE EVENT DATE: 20210101
